FAERS Safety Report 5896577-X (Version None)
Quarter: 2008Q3

REPORT INFORMATION
  Report Type: 
  Country: None (occurrence: None)
  Receive Date: 20080924
  Receipt Date: 20070817
  Transmission Date: 20090109
  Serious: No
  Sender: FDA-Public Use
  Company Number: PR-BAYER-200712821BWH

PATIENT
  Age: 45 Year
  Sex: Male

DRUGS (5)
  1. AVELOX [Suspect]
     Indication: DRUG USE FOR UNKNOWN INDICATION
     Dosage: TOTAL DAILY DOSE: 400 MG  UNIT DOSE: 400 MG
     Route: 048
     Dates: start: 20070318, end: 20070318
  2. MICARDIS [Concomitant]
     Indication: HYPERTENSION
     Route: 048
  3. CLARINEX [Concomitant]
     Indication: PRURITUS
     Route: 048
  4. BENADRYL [Concomitant]
     Indication: PRURITUS
     Dosage: UNIT DOSE: 50 MG
     Route: 030
  5. KENALOG [Concomitant]
     Indication: PRURITUS
     Dosage: UNIT DOSE: 40 MG
     Route: 030

REACTIONS (3)
  - EYE PRURITUS [None]
  - PRURITUS [None]
  - THROAT IRRITATION [None]
